FAERS Safety Report 15454286 (Version 1)
Quarter: 2018Q4

REPORT INFORMATION
  Report Type: Spontaneous
  Country: GB (occurrence: GB)
  Receive Date: 20181002
  Receipt Date: 20181002
  Transmission Date: 20190204
  Serious: Yes (Other)
  Sender: FDA-Public Use
  Company Number: GB-CURIUM PHARMACEUTICALS-201800343

PATIENT
  Age: 54 Year
  Sex: Female

DRUGS (1)
  1. SODIUM IODIDE I 131 [Suspect]
     Active Substance: SODIUM IODIDE I-131
     Indication: RADIOACTIVE IODINE THERAPY
     Dosage: HIGH DOSE
     Route: 065

REACTIONS (2)
  - Therapy non-responder [Unknown]
  - Endocrine ophthalmopathy [Unknown]
